FAERS Safety Report 10032443 (Version 1)
Quarter: 2014Q1

REPORT INFORMATION
  Report Type: Spontaneous
  Country: GB (occurrence: None)
  Receive Date: 20140320
  Receipt Date: 20140320
  Transmission Date: 20141002
  Serious: Yes (Other)
  Sender: FDA-Public Use
  Company Number: AUR-APL-2014-02815

PATIENT
  Age: 26 Year
  Sex: Female
  Weight: 55.78 kg

DRUGS (2)
  1. MIRTAZAPINE (MIRTAZAPINE) [Suspect]
     Indication: MAJOR DEPRESSION
     Route: 048
  2. CITALOPRAM (CITALOPRAM) [Concomitant]

REACTIONS (6)
  - Abdominal distension [None]
  - Food intolerance [None]
  - Dizziness [None]
  - Impaired driving ability [None]
  - Weight increased [None]
  - Abdominal discomfort [None]
